FAERS Safety Report 7949075-3 (Version None)
Quarter: 2011Q4

REPORT INFORMATION
  Report Type: 
  Country: None (occurrence: None)
  Receive Date: 20111130
  Receipt Date: 20110826
  Transmission Date: 20120403
  Serious: No
  Sender: FDA-Public Use
  Company Number: US-BRISTOL-MYERS SQUIBB COMPANY-16012668

PATIENT
  Age: 48 Year
  Sex: Female
  Weight: 82 kg

DRUGS (8)
  1. VITAMIN [Suspect]
     Dosage: VITAMIN/NUTRITIONAL DRINK
  2. IMITREX [Concomitant]
  3. CRESTOR [Concomitant]
  4. TPN [Suspect]
  5. TOPROL-XL [Concomitant]
  6. KOMBIGLYZE XR [Suspect]
  7. LANTUS [Concomitant]
  8. BENICAR [Concomitant]

REACTIONS (1)
  - DIARRHOEA [None]
